FAERS Safety Report 25567608 (Version 1)
Quarter: 2025Q3

REPORT INFORMATION
  Report Type: Spontaneous
  Country: CA (occurrence: CA)
  Receive Date: 20250716
  Receipt Date: 20250716
  Transmission Date: 20251020
  Serious: Yes (Other)
  Sender: OTSUKA
  Company Number: CA-MMM-Otsuka-H0EWFJPR

PATIENT
  Sex: Female

DRUGS (7)
  1. ARIPIPRAZOLE [Suspect]
     Active Substance: ARIPIPRAZOLE
     Indication: Product used for unknown indication
     Route: 065
  2. EPTINEZUMAB [Suspect]
     Active Substance: EPTINEZUMAB
     Indication: Migraine
     Route: 065
     Dates: start: 20241025, end: 20250708
  3. EPTINEZUMAB [Suspect]
     Active Substance: EPTINEZUMAB
     Route: 065
     Dates: start: 20250708
  4. BOTOX [Concomitant]
     Active Substance: ONABOTULINUMTOXINA
     Indication: Product used for unknown indication
     Route: 065
     Dates: start: 20221101
  5. TOPIRAMATE [Concomitant]
     Active Substance: TOPIRAMATE
     Indication: Product used for unknown indication
     Dosage: 100 MG, BID
     Route: 065
     Dates: start: 20230401
  6. LEVOTHYROXINE [Concomitant]
     Active Substance: LEVOTHYROXINE
     Indication: Product used for unknown indication
     Route: 065
  7. MIRTAZAPINE [Concomitant]
     Active Substance: MIRTAZAPINE
     Indication: Product used for unknown indication
     Route: 065

REACTIONS (1)
  - Migraine [Not Recovered/Not Resolved]
